FAERS Safety Report 19099151 (Version 1)
Quarter: 2021Q2

REPORT INFORMATION
  Report Type: Spontaneous
  Country: MK (occurrence: MK)
  Receive Date: 20210406
  Receipt Date: 20210406
  Transmission Date: 20210717
  Serious: Yes (Other)
  Sender: FDA-Public Use
  Company Number: MK-BAUSCH-BL-2021-010663

PATIENT
  Age: 35 Year
  Sex: Female

DRUGS (2)
  1. DIAZEPAM. [Suspect]
     Active Substance: DIAZEPAM
     Indication: ANXIETY
     Dosage: ONCE OR TWICE PER DAY; INGESTION
     Route: 048
  2. DIAZEPAM. [Suspect]
     Active Substance: DIAZEPAM
     Dosage: RE?INTRODUCED; INGESTION
     Route: 048

REACTIONS (1)
  - Acute febrile neutrophilic dermatosis [Recovered/Resolved]
